FAERS Safety Report 9224466 (Version 1)
Quarter: 2013Q2

REPORT INFORMATION
  Report Type: Spontaneous
  Country: US (occurrence: US)
  Receive Date: 20130411
  Receipt Date: 20130411
  Transmission Date: 20140414
  Serious: No
  Sender: FDA-Public Use
  Company Number: US-ASTRAZENECA-2013SE18622

PATIENT
  Age: 58 Year
  Sex: Female
  Weight: 64.4 kg

DRUGS (3)
  1. NEXIUM [Suspect]
     Indication: GASTROOESOPHAGEAL REFLUX DISEASE
     Route: 048
  2. NEXIUM [Suspect]
     Indication: ULCER
     Route: 048
  3. PRILOSEC DELAYED-RELEASE CAPSULES [Suspect]
     Indication: GASTROOESOPHAGEAL REFLUX DISEASE
     Dosage: TID
     Route: 048

REACTIONS (6)
  - Aphagia [Unknown]
  - Vomiting [Unknown]
  - Abdominal discomfort [Unknown]
  - Nausea [Unknown]
  - Off label use [Unknown]
  - Drug ineffective [Unknown]
